FAERS Safety Report 4521377-2 (Version None)
Quarter: 2004Q4

REPORT INFORMATION
  Report Type: 
  Country: None (occurrence: None)
  Receive Date: 20041025
  Receipt Date: 20031110
  Transmission Date: 20050328
  Serious: Yes (Hospitalization, Disabling)
  Sender: FDA-Public Use
  Company Number: HQWYE023212NOV03

PATIENT
  Age: 67 Year
  Sex: Female

DRUGS (3)
  1. PREMARIN [Suspect]
     Indication: OESTROGEN REPLACEMENT THERAPY
     Dosage: 0.625MG TABLET DAILY, ORAL
     Route: 048
     Dates: start: 19940705, end: 19981101
  2. PREMARIN [Suspect]
     Dosage: 0.625MG TABLET DAILY, ORAL
     Route: 048
     Dates: start: 19990501
  3. COUMADIN [Concomitant]

REACTIONS (1)
  - ISCHAEMIC STROKE [None]
